FAERS Safety Report 6405398-0 (Version None)
Quarter: 2009Q4

REPORT INFORMATION
  Report Type: 
  Country: None (occurrence: None)
  Receive Date: 20091019
  Receipt Date: 20091009
  Transmission Date: 20100525
  Serious: Yes (Other)
  Sender: FDA-Public Use
  Company Number: BR-PFIZER INC-2009267728

PATIENT
  Age: 38 Year

DRUGS (10)
  1. DEPO-PROVERA [Suspect]
     Indication: OFF LABEL USE
     Dosage: 150 MG, EVERY 3 MONTHS
     Route: 030
     Dates: start: 20090511, end: 20090611
  2. DEPO-PROVERA [Suspect]
     Indication: MENORRHAGIA
  3. PRIMOSISTON [Concomitant]
     Dosage: UNK
     Dates: start: 20090331
  4. TRANSAMIN [Concomitant]
     Dosage: UNK
     Dates: start: 20090331
  5. GALENIC /ETHINYLESTRADIOL/GESTODENE/ [Concomitant]
     Dosage: UNK
  6. VENALOT [Concomitant]
     Dosage: UNK
     Dates: start: 20090611
  7. CAPILAREMA [Concomitant]
     Dosage: UNK
     Dates: start: 20090611
  8. HYGROTON [Concomitant]
     Dosage: 12.5 MG, UNK
     Dates: start: 20090611
  9. OMEPRAZOLE [Concomitant]
     Dosage: UNK
     Dates: start: 20090611
  10. AAS [Concomitant]
     Dosage: UNK
     Dates: start: 20090611

REACTIONS (3)
  - HYPOAESTHESIA [None]
  - PAIN IN EXTREMITY [None]
  - UTERINE POLYP [None]
